FAERS Safety Report 9700121 (Version 1)
Quarter: 2013Q4

REPORT INFORMATION
  Report Type: Spontaneous
  Country: FR (occurrence: FR)
  Receive Date: 20131121
  Receipt Date: 20131121
  Transmission Date: 20140711
  Serious: Yes (Hospitalization)
  Sender: FDA-Public Use
  Company Number: FR-BRISTOL-MYERS SQUIBB COMPANY-19815893

PATIENT
  Age: 77 Year
  Sex: Male

DRUGS (10)
  1. GLUCOPHAGE TABS 500 MG [Suspect]
     Route: 048
     Dates: end: 20130503
  2. BURINEX [Suspect]
     Route: 048
     Dates: end: 20130503
  3. AMLOR [Concomitant]
  4. COVERSYL [Concomitant]
  5. CARDENSIEL [Concomitant]
  6. DILTIAZEM HCL [Concomitant]
  7. ZOLOFT [Concomitant]
  8. XATRAL [Concomitant]
  9. UVEDOSE [Concomitant]
  10. OFLOCET [Concomitant]

REACTIONS (4)
  - Lactic acidosis [Recovered/Resolved]
  - Renal failure acute [Recovered/Resolved]
  - Diarrhoea [Recovered/Resolved]
  - Malaise [Recovered/Resolved]
